FAERS Safety Report 7827805-9 (Version None)
Quarter: 2011Q4

REPORT INFORMATION
  Report Type: 
  Country: None (occurrence: None)
  Receive Date: 20111020
  Receipt Date: 20111007
  Transmission Date: 20120403
  Serious: Yes (Other)
  Sender: FDA-Public Use
  Company Number: IT-SANOFI-AVENTIS-2011SA067234

PATIENT
  Sex: Female

DRUGS (5)
  1. TRASTUZUMAB [Suspect]
     Dosage: LOADING DOSE IN A 90 MIN INFUSION
     Route: 042
  2. DEXAMETHASONE [Concomitant]
  3. DOXORUBICIN HCL [Suspect]
     Dosage: ON DAY 1
     Route: 065
  4. DOCETAXEL [Suspect]
     Dosage: ON DAYS 2 AND 9
     Route: 065
  5. TRASTUZUMAB [Suspect]
     Route: 042

REACTIONS (17)
  - BLOOD ALKALINE PHOSPHATASE ABNORMAL [None]
  - PAIN [None]
  - BONE MARROW FAILURE [None]
  - PLATELET COUNT DECREASED [None]
  - SKIN TOXICITY [None]
  - NAUSEA [None]
  - VOMITING [None]
  - GRANULOCYTOPENIA [None]
  - NEUTROPENIA [None]
  - DIARRHOEA [None]
  - ASTHENIA [None]
  - ALOPECIA [None]
  - ORAL TOXICITY [None]
  - EJECTION FRACTION DECREASED [None]
  - LEUKOPENIA [None]
  - FEBRILE NEUTROPENIA [None]
  - DEPRESSION [None]
